FAERS Safety Report 10672697 (Version 3)
Quarter: 2017Q1

REPORT INFORMATION
  Report Type: Spontaneous
  Country: US (occurrence: US)
  Receive Date: 20141223
  Receipt Date: 20170314
  Transmission Date: 20170428
  Serious: Yes (Other)
  Sender: FDA-Public Use
  Company Number: US-ELI_LILLY_AND_COMPANY-US201412006875

PATIENT
  Age: 54 Year
  Sex: Female

DRUGS (3)
  1. CYMBALTA [Suspect]
     Active Substance: DULOXETINE HYDROCHLORIDE
     Dosage: 60 MG, QD
     Route: 048
  2. CYMBALTA [Suspect]
     Active Substance: DULOXETINE HYDROCHLORIDE
     Indication: MAJOR DEPRESSION
     Dosage: UNK, UNKNOWN
     Route: 048
     Dates: start: 201111, end: 201212
  3. CYMBALTA [Suspect]
     Active Substance: DULOXETINE HYDROCHLORIDE
     Indication: PAIN
     Dosage: 90 MG, QD
     Route: 048

REACTIONS (17)
  - Aphasia [Unknown]
  - Paraesthesia [Unknown]
  - Nausea [Unknown]
  - Mood swings [Unknown]
  - Agitation [Unknown]
  - Irritability [Unknown]
  - Memory impairment [Unknown]
  - Drug withdrawal syndrome [Unknown]
  - Dizziness [Unknown]
  - Fatigue [Unknown]
  - Confusional state [Unknown]
  - Insomnia [Unknown]
  - Influenza like illness [Unknown]
  - Suicidal ideation [Unknown]
  - Vertigo [Unknown]
  - Nightmare [Unknown]
  - Anxiety [Unknown]

NARRATIVE: CASE EVENT DATE: 201212
